FAERS Safety Report 5350479-6 (Version None)
Quarter: 2007Q2

REPORT INFORMATION
  Report Type: 
  Country: None (occurrence: None)
  Receive Date: 20070608
  Receipt Date: 20070529
  Transmission Date: 20071010
  Serious: Yes (Hospitalization)
  Sender: FDA-Public Use
  Company Number: PHBS2007US09026

PATIENT
  Age: 61 Year
  Sex: Female

DRUGS (1)
  1. PIMECROLIMUS [Suspect]
     Indication: ECZEMA
     Route: 061

REACTIONS (8)
  - BRAIN MASS [None]
  - LYMPHADENOPATHY [None]
  - MASS EXCISION [None]
  - METASTASES TO CENTRAL NERVOUS SYSTEM [None]
  - NON-HODGKIN'S LYMPHOMA [None]
  - NON-HODGKIN'S LYMPHOMA RECURRENT [None]
  - OSTEOSARCOMA LOCALISED [None]
  - STEM CELL TRANSPLANT [None]
